FAERS Safety Report 23820241 (Version 1)
Quarter: 2024Q2

REPORT INFORMATION
  Report Type: Spontaneous
  Country: FR (occurrence: FR)
  Receive Date: 20240506
  Receipt Date: 20240506
  Transmission Date: 20240715
  Serious: Yes (Other)
  Sender: FDA-Public Use
  Company Number: None

PATIENT
  Age: 55 Year
  Sex: Male
  Weight: 95 kg

DRUGS (3)
  1. TACROLIMUS [Suspect]
     Active Substance: TACROLIMUS
     Indication: Transplant
     Dosage: 2MG *2/DAY
     Route: 048
     Dates: start: 20201006, end: 20240401
  2. TACROLIMUS [Suspect]
     Active Substance: TACROLIMUS
     Indication: Transplant
     Route: 048
     Dates: start: 20240409
  3. AMOXICILLIN [Suspect]
     Active Substance: AMOXICILLIN
     Indication: Infection
     Dosage: 1G X3/J
     Route: 048
     Dates: start: 20240327, end: 20240330

REACTIONS (1)
  - Generalised tonic-clonic seizure [Recovered/Resolved]

NARRATIVE: CASE EVENT DATE: 20240329
